FAERS Safety Report 7842133-3 (Version None)
Quarter: 2011Q4

REPORT INFORMATION
  Report Type: 
  Country: None (occurrence: None)
  Receive Date: 20111019
  Receipt Date: 20111004
  Transmission Date: 20120403
  Serious: Yes (Hospitalization)
  Sender: FDA-Public Use
  Company Number: 2011SP047069

PATIENT
  Age: 70 Year
  Sex: Female
  Weight: 49.8 kg

DRUGS (10)
  1. TANATRIL [Concomitant]
  2. FAMOTIDINE [Concomitant]
  3. LENDORMIN D [Concomitant]
  4. PURSENNID /00571901/ [Concomitant]
  5. CLARITIN [Concomitant]
  6. PEG-INTRON [Suspect]
     Indication: HEPATITIS C
     Dosage: 80 MCG;QW;SC
     Route: 058
     Dates: start: 20110531
  7. ALPRAZOLAM [Concomitant]
  8. AMOBAN [Concomitant]
  9. REBETOL [Suspect]
     Indication: HEPATITIS C
     Dosage: 600 MG;QD;PO
     Route: 048
     Dates: start: 20110531
  10. BISOPROLOL FUMARATE [Concomitant]

REACTIONS (2)
  - HYPONATRAEMIA [None]
  - INAPPROPRIATE ANTIDIURETIC HORMONE SECRETION [None]
